FAERS Safety Report 10070161 (Version 1)
Quarter: 2014Q2

REPORT INFORMATION
  Report Type: Other
  Country: DE (occurrence: DE)
  Receive Date: 20140410
  Receipt Date: 20140410
  Transmission Date: 20141212
  Serious: Yes (Congenital Anomaly)
  Sender: FDA-Public Use
  Company Number: DE-SUN PHARMACEUTICAL INDUSTRIES LTD-2014SUN00753

PATIENT
  Sex: Male
  Weight: 3.04 kg

DRUGS (2)
  1. VENLAFAXINE HYDROCHLORIDE 150MG TABLET [Suspect]
     Indication: DEPRESSION
     Dosage: 150 MG, OD, IN 1 AND 2 TRIMESTER
     Route: 064
  2. VENLAFAXINE HYDROCHLORIDE 150MG TABLET [Suspect]
     Dosage: 75 MG, OD, IN 3 RD TRIMESTER
     Route: 064
     Dates: start: 20130113, end: 20131016

REACTIONS (2)
  - Talipes [Recovering/Resolving]
  - Foetal exposure during pregnancy [Unknown]
